FAERS Safety Report 7971626-3 (Version None)
Quarter: 2011Q4

REPORT INFORMATION
  Report Type: 
  Country: None (occurrence: None)
  Receive Date: 20111212
  Receipt Date: 20111129
  Transmission Date: 20120403
  Serious: Yes (Death, Hospitalization)
  Sender: FDA-Public Use
  Company Number: AU-CELGENEUS-008-50794-11042139

PATIENT
  Age: 70 Year
  Sex: Male
  Weight: 75 kg

DRUGS (2)
  1. VIDAZA [Suspect]
     Dosage: 75 MILLIGRAM/SQ. METER
     Route: 050
     Dates: start: 20110228, end: 20110308
  2. TRANEXAMIC ACID [Concomitant]
     Dosage: 1 GRAM
     Route: 065
     Dates: start: 20110110

REACTIONS (4)
  - RENAL IMPAIRMENT [None]
  - ACUTE MYELOID LEUKAEMIA [None]
  - MYELODYSPLASTIC SYNDROME TRANSFORMATION [None]
  - URINARY TRACT INFECTION [None]
